FAERS Safety Report 25086202 (Version 4)
Quarter: 2025Q4

REPORT INFORMATION
  Report Type: Spontaneous
  Country: US (occurrence: US)
  Receive Date: 20250317
  Receipt Date: 20251117
  Transmission Date: 20260118
  Serious: No
  Sender: VERTEX
  Company Number: US-VERTEX PHARMACEUTICALS-2025-003677

PATIENT

DRUGS (1)
  1. JOURNAVX [Suspect]
     Active Substance: SUZETRIGINE
     Indication: Small fibre neuropathy
     Dosage: UNK
     Route: 048
     Dates: start: 2025, end: 2025

REACTIONS (4)
  - Burning sensation [Recovered/Resolved]
  - Paraesthesia [Recovered/Resolved]
  - Skin fissures [Unknown]
  - Off label use [Unknown]

NARRATIVE: CASE EVENT DATE: 20250101
